FAERS Safety Report 7638774-9 (Version None)
Quarter: 2011Q3

REPORT INFORMATION
  Report Type: 
  Country: None (occurrence: None)
  Receive Date: 20110727
  Receipt Date: 20110720
  Transmission Date: 20111222
  Serious: Yes (Other)
  Sender: FDA-Public Use
  Company Number: AU-ROCHE-790417

PATIENT
  Sex: Female

DRUGS (8)
  1. ACTEMRA [Suspect]
     Indication: RHEUMATOID ARTHRITIS
     Route: 042
     Dates: start: 20110519
  2. FOLIC ACID [Concomitant]
  3. NEXIUM [Concomitant]
  4. ARAVA [Concomitant]
  5. ACTEMRA [Suspect]
     Route: 042
     Dates: start: 20110617
  6. METHOTREXATE [Concomitant]
  7. SULFASALAZINE [Concomitant]
     Route: 065
  8. VITAMIN D [Concomitant]
     Dosage: DRUG NAME REPORTED AS VITAMIN D.

REACTIONS (3)
  - EYE SWELLING [None]
  - EYE IRRITATION [None]
  - MOUTH ULCERATION [None]
